FAERS Safety Report 5236455-2 (Version None)
Quarter: 2007Q1

REPORT INFORMATION
  Report Type: 
  Country: None (occurrence: None)
  Receive Date: 20061208
  Receipt Date: 20060612
  Transmission Date: 20070707
  Serious: Yes (Other)
  Sender: FDA-Public Use
  Company Number: 2006UW12483

PATIENT
  Age: 61 Year
  Sex: Female
  Weight: 74.842 kg

DRUGS (6)
  1. CRESTOR [Suspect]
     Indication: BLOOD CHOLESTEROL INCREASED
     Dosage: 5 MG QD PO
     Route: 048
  2. PREMPRO [Concomitant]
  3. SYNTHROID [Concomitant]
  4. CALCIUM [Concomitant]
  5. VITAMIN CAP [Concomitant]
  6. ASPIRIN [Concomitant]

REACTIONS (1)
  - MUSCLE SPASMS [None]
